FAERS Safety Report 5052525-6 (Version None)
Quarter: 2006Q3

REPORT INFORMATION
  Report Type: 
  Country: None (occurrence: None)
  Receive Date: 20060717
  Receipt Date: 20060622
  Transmission Date: 20061208
  Serious: Yes (Hospitalization, Other)
  Sender: FDA-Public Use
  Company Number: PHHO2006JP10326

PATIENT
  Age: 54 Year
  Sex: Female

DRUGS (3)
  1. DIOVAN [Suspect]
     Indication: HYPERTENSION
     Dosage: 80 MG, QD
     Route: 048
     Dates: start: 20030401
  2. LIVALO KOWA [Concomitant]
     Indication: HYPERCHOLESTEROLAEMIA
  3. SEDIEL [Concomitant]
     Indication: NEUROSIS

REACTIONS (4)
  - ACUTE MYOCARDIAL INFARCTION [None]
  - CHEST PAIN [None]
  - CORONARY ARTERY BYPASS [None]
  - ELECTROCARDIOGRAM ST SEGMENT ELEVATION [None]
